FAERS Safety Report 8877675 (Version 2)
Quarter: 2012Q4

REPORT INFORMATION
  Report Type: Report from Study
  Country: US (occurrence: US)
  Receive Date: 20121024
  Receipt Date: 20121109
  Transmission Date: 20130627
  Serious: Yes (Hospitalization)
  Sender: FDA-Public Use
  Company Number: US-ROCHE-1145179

PATIENT
  Age: 43 Year
  Sex: Female

DRUGS (3)
  1. PEG-INTERFERON ALFA 2A [Suspect]
     Indication: CHRONIC HEPATITIS C
     Dosage: Dose prior to SAE26/Sep/2012
     Route: 065
     Dates: start: 20120815
  2. RIBAVIRIN [Suspect]
     Indication: CHRONIC HEPATITIS C
     Dosage: last dose prior to SAE:01/Oct/2012
     Route: 065
     Dates: start: 20120815
  3. TELAPREVIR [Suspect]
     Indication: CHRONIC HEPATITIS C
     Dosage: last dose prior to SAE:01/Oct/2012
     Route: 065
     Dates: start: 20120815

REACTIONS (2)
  - Proctocolitis [Not Recovered/Not Resolved]
  - Gastritis erosive [Recovered/Resolved]
